FAERS Safety Report 4282317-7 (Version None)
Quarter: 2004Q1

REPORT INFORMATION
  Report Type: 
  Country: None (occurrence: None)
  Receive Date: 20040112
  Receipt Date: 20031106
  Transmission Date: 20041129
  Serious: Yes (Death)
  Sender: FDA-Public Use
  Company Number: 352161

PATIENT
  Age: 43 Year
  Sex: Male
  Weight: 65.8 kg

DRUGS (1)
  1. FUZEON [Suspect]
     Dosage: SUBCUTANEOUS
     Route: 058

REACTIONS (1)
  - CENTRAL NERVOUS SYSTEM LYMPHOMA [None]
